FAERS Safety Report 22152302 (Version 1)
Quarter: 2023Q1

REPORT INFORMATION
  Report Type: Spontaneous
  Country: US (occurrence: None)
  Receive Date: 20230329
  Receipt Date: 20230329
  Transmission Date: 20230418
  Serious: Yes (Other)
  Sender: FDA-Public Use
  Company Number: None

PATIENT
  Age: 77 Year
  Sex: Female
  Weight: 71.1 kg

DRUGS (7)
  1. LACOSAMIDE [Suspect]
     Active Substance: LACOSAMIDE
     Indication: Epilepsy
     Dosage: FREQUENCY : TWICE A DAY;?
     Route: 048
     Dates: start: 20230312, end: 20230318
  2. VIMPAT [Concomitant]
     Active Substance: LACOSAMIDE
  3. NOR [Concomitant]
  4. ESOMEPRAZOLE [Concomitant]
     Active Substance: ESOMEPRAZOLE
  5. MAGNESIUM [Concomitant]
     Active Substance: MAGNESIUM
  6. CALCIUM [Concomitant]
     Active Substance: CALCIUM
  7. VITAMIN D [Concomitant]
     Active Substance: VITAMIN D NOS

REACTIONS (7)
  - Product physical consistency issue [None]
  - Product substitution issue [None]
  - Vertigo [None]
  - Headache [None]
  - Pain in jaw [None]
  - Abdominal pain upper [None]
  - Visual impairment [None]

NARRATIVE: CASE EVENT DATE: 20230316
